FAERS Safety Report 16939458 (Version 1)
Quarter: 2019Q4

REPORT INFORMATION
  Report Type: Spontaneous
  Country: IT (occurrence: IT)
  Receive Date: 20191021
  Receipt Date: 20191021
  Transmission Date: 20200122
  Serious: Yes (Other)
  Sender: FDA-Public Use
  Company Number: IT-BAXTER-2019BAX020969

PATIENT
  Age: 67 Year
  Sex: Female
  Weight: 61 kg

DRUGS (1)
  1. DOXIL [Suspect]
     Active Substance: DOXORUBICIN HYDROCHLORIDE
     Indication: OVARIAN CANCER
     Route: 041

REACTIONS (5)
  - Pyrexia [Recovering/Resolving]
  - Mucosal inflammation [Recovering/Resolving]
  - Bone marrow toxicity [Recovering/Resolving]
  - Cystitis haemorrhagic [Recovering/Resolving]
  - Palmar-plantar erythrodysaesthesia syndrome [Recovering/Resolving]

NARRATIVE: CASE EVENT DATE: 20190916
